FAERS Safety Report 6583848-7 (Version None)
Quarter: 2010Q1

REPORT INFORMATION
  Report Type: 
  Country: None (occurrence: None)
  Receive Date: 20100213
  Receipt Date: 20100213
  Transmission Date: 20100710
  Serious: Yes (Life-Threatening)
  Sender: FDA-Public Use
  Company Number: None

PATIENT
  Sex: Male
  Weight: 75 kg

DRUGS (1)
  1. HURRICAINE 20% BENZOCAINE BEUTLICH [Suspect]
     Indication: ECHOCARDIOGRAM
     Dosage: PERIPROCEDURAL TOP
     Route: 061
     Dates: start: 20100205, end: 20100205

REACTIONS (4)
  - BLOOD GASES ABNORMAL [None]
  - BLOOD METHAEMOGLOBIN PRESENT [None]
  - ENDOCARDITIS [None]
  - HYPOXIA [None]
